FAERS Safety Report 10522529 (Version 1)
Quarter: 2014Q4

REPORT INFORMATION
  Report Type: Spontaneous
  Country: SE (occurrence: SE)
  Receive Date: 20141016
  Receipt Date: 20141016
  Transmission Date: 20150528
  Serious: Yes (Hospitalization)
  Sender: FDA-Public Use
  Company Number: SE-PFIZER INC-2014279729

PATIENT
  Age: 78 Year
  Sex: Female

DRUGS (23)
  1. TROMBYL [Concomitant]
     Active Substance: ASPIRIN
  2. SOBRIL [Concomitant]
     Active Substance: OXAZEPAM
  3. ZOPICLONE MYLAN [Concomitant]
  4. NICOTINELL [Concomitant]
     Active Substance: NICOTINE
  5. ENALAPRIL [Concomitant]
     Active Substance: ENALAPRIL
  6. MILDISON LIPID [Concomitant]
  7. NORFLEX [Concomitant]
     Active Substance: ORPHENADRINE CITRATE
  8. MOVICOL [Concomitant]
     Active Substance: POLYETHYLENE GLYCOL 3350\POTASSIUM CHLORIDE\SODIUM BICARBONATE\SODIUM CHLORIDE
  9. LOCOID LIPID [Concomitant]
     Dosage: UNK
  10. MOLLIPECT [Concomitant]
     Active Substance: BROMHEXINE
     Dosage: UNK
  11. KALCIPOS-D [Concomitant]
     Active Substance: CALCIUM CARBONATE\CHOLECALCIFEROL
  12. BEHEPAN [Concomitant]
     Active Substance: HYDROXOCOBALAMIN
  13. ERGENYL RETARD [Concomitant]
     Active Substance: VALPROIC ACID
  14. CITALOPRAM [Concomitant]
     Active Substance: CITALOPRAM HYDROBROMIDE
  15. CILAXORAL [Concomitant]
     Dosage: UNK
  16. DOLCONTIN [Suspect]
     Active Substance: MORPHINE
     Indication: PAIN
     Dosage: 10 MG, 3X/DAY
     Route: 048
     Dates: start: 20140902
  17. SPIRONOLACTONE NYCOMED [Concomitant]
  18. ATENOLOL. [Concomitant]
     Active Substance: ATENOLOL
  19. HEMINEVRIN [Concomitant]
     Active Substance: CLOMETHIAZOLE
  20. ALVEDON [Concomitant]
     Active Substance: ACETAMINOPHEN
     Dosage: UNK
  21. FURIX [Concomitant]
     Active Substance: FUROSEMIDE
  22. KETOGAN NOVUM [Concomitant]
     Dosage: UNK
  23. STESOLID RECTAL PREFILL [Concomitant]
     Dosage: UNK

REACTIONS (3)
  - Blood creatinine increased [Recovered/Resolved]
  - Urinary retention [Recovered/Resolved]
  - C-reactive protein increased [Recovered/Resolved]

NARRATIVE: CASE EVENT DATE: 20140916
